FAERS Safety Report 22288645 (Version 1)
Quarter: 2023Q2

REPORT INFORMATION
  Report Type: Report from Study
  Country: US (occurrence: US)
  Receive Date: 20230505
  Receipt Date: 20230505
  Transmission Date: 20230721
  Serious: Yes (Hospitalization, Other)
  Sender: FDA-Public Use
  Company Number: US-BAYER-2023A047370

PATIENT
  Age: 73 Year
  Sex: Female

DRUGS (4)
  1. ADEMPAS [Suspect]
     Active Substance: RIOCIGUAT
     Dosage: UNK UNK, TID
     Route: 048
     Dates: start: 202302
  2. ADEMPAS [Suspect]
     Active Substance: RIOCIGUAT
     Dosage: UNK
  3. SELEXIPAG [Suspect]
     Active Substance: SELEXIPAG
     Dosage: 400 MG
  4. MACITENTAN [Suspect]
     Active Substance: MACITENTAN

REACTIONS (9)
  - Hypotension [Not Recovered/Not Resolved]
  - Nausea [Not Recovered/Not Resolved]
  - Illness [Not Recovered/Not Resolved]
  - Headache [None]
  - Abdominal discomfort [None]
  - Diarrhoea [None]
  - Dyspnoea [None]
  - Retching [None]
  - Salivary gland pain [None]

NARRATIVE: CASE EVENT DATE: 20230323
